FAERS Safety Report 4391810-8 (Version None)
Quarter: 2004Q3

REPORT INFORMATION
  Report Type: 
  Country: None (occurrence: None)
  Receive Date: 20040701
  Receipt Date: 20040615
  Transmission Date: 20050211
  Serious: Yes (Hospitalization)
  Sender: FDA-Public Use
  Company Number: US013313

PATIENT
  Age: 45 Year
  Sex: Male

DRUGS (5)
  1. GABITRIL [Suspect]
     Indication: ANGER
     Dosage: 2 MG QD ORAL
     Route: 048
     Dates: start: 20040324, end: 20040331
  2. GABITRIL [Suspect]
     Indication: ANXIETY
     Dosage: 2 MG QD ORAL
     Route: 048
     Dates: start: 20040324, end: 20040331
  3. GABITRIL [Suspect]
     Indication: ANGER
     Dosage: 4 MG QD ORAL
     Route: 048
     Dates: start: 20040401
  4. GABITRIL [Suspect]
     Indication: ANXIETY
     Dosage: 4 MG QD ORAL
     Route: 048
     Dates: start: 20040401
  5. LEXAPRO [Concomitant]

REACTIONS (6)
  - ABNORMAL BEHAVIOUR [None]
  - AGGRESSION [None]
  - AGITATION [None]
  - DISINHIBITION [None]
  - FATIGUE [None]
  - SPEECH DISORDER [None]
